FAERS Safety Report 7950979 (Version 2)
Quarter: 2013Q1

REPORT INFORMATION
  Report Type: Other
  Country: IL (occurrence: IL)
  Receive Date: 20110519
  Receipt Date: 20130314
  Transmission Date: 20140127
  Serious: Yes (Other)
  Sender: FDA-Public Use
  Company Number: IL-BRISTOL-MYERS SQUIBB COMPANY-15754542

PATIENT
  Age: 33 Year
  Sex: Female

DRUGS (5)
  1. EFAVIRENZ [Suspect]
     Indication: HIV INFECTION
     Route: 048
  2. EMTRICITABINE [Suspect]
     Indication: HIV INFECTION
     Dosage: TABLET
     Route: 065
  3. EMTRICITABINE [Suspect]
     Indication: ANTIRETROVIRAL THERAPY
     Dosage: TABLET
     Route: 065
  4. TENOFOVIR [Suspect]
     Indication: HIV INFECTION
     Dosage: TABLET
     Route: 065
  5. TENOFOVIR [Suspect]
     Indication: ANTIRETROVIRAL THERAPY
     Dosage: TABLET
     Route: 065

REACTIONS (2)
  - Immune reconstitution inflammatory syndrome [Unknown]
  - Tuberculosis [Recovered/Resolved]
